FAERS Safety Report 4356159-8 (Version None)
Quarter: 2004Q2

REPORT INFORMATION
  Report Type: 
  Country: None (occurrence: None)
  Receive Date: 20040506
  Receipt Date: 20040420
  Transmission Date: 20050107
  Serious: Yes (Hospitalization)
  Sender: FDA-Public Use
  Company Number: PHBS2004CA03019

PATIENT
  Age: 60 Year
  Sex: Female

DRUGS (2)
  1. VISUDYNE [Suspect]
     Dates: start: 20040827, end: 20040227
  2. DIURETICS [Concomitant]

REACTIONS (4)
  - EXTRAVASATION [None]
  - INJECTION SITE DISCOLOURATION [None]
  - INJECTION SITE NECROSIS [None]
  - MEDICATION ERROR [None]
